FAERS Safety Report 10100686 (Version 1)
Quarter: 2014Q2

REPORT INFORMATION
  Report Type: Spontaneous
  Country: US (occurrence: US)
  Receive Date: 20140423
  Receipt Date: 20140423
  Transmission Date: 20141212
  Serious: Yes (Other)
  Sender: FDA-Public Use
  Company Number: US-BAXTER-2014BAX019535

PATIENT
  Age: 17 Year
  Sex: Female

DRUGS (16)
  1. VANCOMYCIN INJECTION, USP [Suspect]
     Indication: SWELLING FACE
     Route: 065
  2. VANCOMYCIN INJECTION, USP [Suspect]
     Indication: PAIN
  3. DOXYCYCLINE [Suspect]
     Indication: NASAL ABSCESS
     Route: 065
  4. ROCEPHIN [Suspect]
     Indication: SWELLING FACE
     Route: 065
  5. ROCEPHIN [Suspect]
     Indication: PAIN
  6. KEFLEX [Suspect]
     Indication: SWELLING FACE
     Route: 065
  7. KEFLEX [Suspect]
     Indication: PAIN
  8. BACTRIM [Suspect]
     Indication: SWELLING FACE
     Route: 065
  9. BACTRIM [Suspect]
     Indication: PAIN
  10. CLINDAMYCIN [Suspect]
     Indication: CELLULITIS
     Route: 065
  11. LISINOPRIL [Concomitant]
     Indication: PRODUCT USED FOR UNKNOWN INDICATION
     Route: 065
  12. RISPERDAL [Concomitant]
     Indication: PRODUCT USED FOR UNKNOWN INDICATION
     Route: 065
  13. METFORMIN [Concomitant]
     Indication: PRODUCT USED FOR UNKNOWN INDICATION
     Route: 065
  14. INSULIN [Concomitant]
     Indication: PRODUCT USED FOR UNKNOWN INDICATION
     Route: 065
  15. DILTIAZEM [Concomitant]
     Indication: PRODUCT USED FOR UNKNOWN INDICATION
     Route: 065
  16. FLUOXETINE [Concomitant]
     Indication: PRODUCT USED FOR UNKNOWN INDICATION
     Route: 065

REACTIONS (2)
  - Swelling face [Recovered/Resolved]
  - Facial pain [Recovered/Resolved]
